FAERS Safety Report 11681379 (Version 1)
Quarter: 2015Q4

REPORT INFORMATION
  Report Type: Spontaneous
  Country: US (occurrence: None)
  Receive Date: 20151028
  Receipt Date: 20151028
  Transmission Date: 20160304
  Serious: Yes (Disabling)
  Sender: FDA-Public Use
  Company Number: None

PATIENT
  Age: 76 Year
  Sex: Male
  Weight: 91.63 kg

DRUGS (5)
  1. CELECOXIB 400 MG TEXA [Suspect]
     Active Substance: CELECOXIB
     Indication: ARTHRITIS
     Dosage: TAKEN BY MOUTH
     Dates: start: 20150815, end: 20151006
  2. LEXAPRO [Concomitant]
     Active Substance: ESCITALOPRAM OXALATE
  3. CELEBREX [Concomitant]
     Active Substance: CELECOXIB
  4. OCUVITE [Concomitant]
     Active Substance: VITAMINS
  5. NEXIUM B12 [Concomitant]

REACTIONS (3)
  - Myalgia [None]
  - Product substitution issue [None]
  - Nipple pain [None]

NARRATIVE: CASE EVENT DATE: 20150821
